FAERS Safety Report 18633538 (Version 1)
Quarter: 2020Q4

REPORT INFORMATION
  Report Type: Spontaneous
  Country: US (occurrence: US)
  Receive Date: 20201218
  Receipt Date: 20201218
  Transmission Date: 20210114
  Serious: Yes (Other)
  Sender: FDA-Public Use
  Company Number: None

PATIENT
  Age: 63 Year
  Sex: Male
  Weight: 87.1 kg

DRUGS (15)
  1. MONTELUKAST [Concomitant]
     Active Substance: MONTELUKAST SODIUM
     Dates: start: 20200811
  2. TADALAFIL. [Concomitant]
     Active Substance: TADALAFIL
     Dates: start: 20191219, end: 20201218
  3. UBIDECARENONE. [Concomitant]
     Active Substance: UBIDECARENONE
     Dates: start: 20190611
  4. ASPIRIN. [Concomitant]
     Active Substance: ASPIRIN
     Dates: start: 20190529
  5. ROSUVASTATIN. [Concomitant]
     Active Substance: ROSUVASTATIN
     Dates: start: 20190611
  6. LANSOPRAZOLE. [Concomitant]
     Active Substance: LANSOPRAZOLE
     Dates: start: 20180808
  7. LEVOTHYROXINE. [Concomitant]
     Active Substance: LEVOTHYROXINE
     Dates: start: 20200723
  8. LOSARTAN. [Concomitant]
     Active Substance: LOSARTAN
     Dates: start: 20200326
  9. BAMLANIVIMAB. [Suspect]
     Active Substance: BAMLANIVIMAB
     Indication: COVID-19
     Dosage: ?          OTHER FREQUENCY:ONCE;?
     Route: 042
     Dates: start: 20201214, end: 20201214
  10. DESONIDE. [Concomitant]
     Active Substance: DESONIDE
     Dates: start: 20200326
  11. FAMOTIDINE. [Concomitant]
     Active Substance: FAMOTIDINE
     Dates: start: 20190611
  12. FLUTICASONE-VILANTEROL [Concomitant]
     Active Substance: FLUTICASONE FUROATE\VILANTEROL TRIFENATATE
     Dates: start: 20190629
  13. ACETAMINOPHEN. [Concomitant]
     Active Substance: ACETAMINOPHEN
     Dates: start: 20201214
  14. ALBUTEROL. [Concomitant]
     Active Substance: ALBUTEROL
     Dates: start: 20200323
  15. CLODIPOGREL BISULFATE [Concomitant]
     Dates: start: 20191210

REACTIONS (5)
  - Nausea [None]
  - Dyspnoea [None]
  - Atelectasis [None]
  - Cough [None]
  - Pulmonary embolism [None]

NARRATIVE: CASE EVENT DATE: 20201214
